FAERS Safety Report 6984186-0 (Version None)
Quarter: 2010Q3

REPORT INFORMATION
  Report Type: 
  Country: None (occurrence: None)
  Receive Date: 20100915
  Receipt Date: 20100907
  Transmission Date: 20110219
  Serious: Yes (Hospitalization)
  Sender: FDA-Public Use
  Company Number: US-BIOGENIDEC-2010BI028389

PATIENT
  Age: 60 Year
  Sex: Female

DRUGS (15)
  1. TYSABRI [Suspect]
     Indication: MULTIPLE SCLEROSIS
     Route: 042
     Dates: start: 20070920, end: 20100806
  2. AVONEX [Concomitant]
     Indication: MULTIPLE SCLEROSIS
     Route: 030
     Dates: start: 20010409
  3. RESTORIL [Concomitant]
  4. LUNESTA [Concomitant]
  5. VERAPAMIL EXTENDED-RELEASE [Concomitant]
  6. LORCET-HD [Concomitant]
  7. LYRICA [Concomitant]
  8. PREMPRO [Concomitant]
  9. PROVIGIL [Concomitant]
  10. CYMBALTA [Concomitant]
  11. FENTANYL CITRATE [Concomitant]
  12. BENICAR [Concomitant]
  13. ENABLEX [Concomitant]
  14. CALCIUM [Concomitant]
  15. VITAMIN D [Concomitant]

REACTIONS (1)
  - PROGRESSIVE MULTIFOCAL LEUKOENCEPHALOPATHY [None]
